FAERS Safety Report 12718308 (Version 1)
Quarter: 2016Q3

REPORT INFORMATION
  Report Type: Spontaneous
  Country: ZA (occurrence: ZA)
  Receive Date: 20160906
  Receipt Date: 20160906
  Transmission Date: 20161109
  Serious: Yes (Death)
  Sender: FDA-Public Use
  Company Number: ZA-VALIDUS PHARMACEUTICALS LLC-ZA-2016VAL002556

PATIENT
  Age: 70 Year
  Sex: Female

DRUGS (2)
  1. LASIX [Suspect]
     Active Substance: FUROSEMIDE
     Indication: PRODUCT USED FOR UNKNOWN INDICATION
     Dosage: 20 MG, BID
     Route: 048
  2. TAMBOCOR [Suspect]
     Active Substance: FLECAINIDE ACETATE
     Indication: ATRIAL FIBRILLATION
     Dosage: 100 MG, DAILY
     Route: 048
     Dates: start: 201606

REACTIONS (2)
  - Renal failure [Fatal]
  - Cardiac failure [Fatal]
